FAERS Safety Report 10979707 (Version 1)
Quarter: 2015Q2

REPORT INFORMATION
  Report Type: Spontaneous
  Country: US (occurrence: US)
  Receive Date: 20150402
  Receipt Date: 20150402
  Transmission Date: 20150821
  Serious: No
  Sender: FDA-Public Use
  Company Number: US-SA-2014SA061355

PATIENT
  Age: 6 Year
  Sex: Male
  Weight: 18.14 kg

DRUGS (1)
  1. ALLEGRA [Suspect]
     Active Substance: FEXOFENADINE HYDROCHLORIDE
     Indication: PRODUCT USED FOR UNKNOWN INDICATION
     Dosage: DOSE:6 MILLIGRAM(S)/MILLILITRE
     Route: 048
     Dates: start: 20130401, end: 20140501

REACTIONS (2)
  - Product taste abnormal [Unknown]
  - Drug ineffective [Unknown]
